FAERS Safety Report 15266343 (Version 2)
Quarter: 2020Q1

REPORT INFORMATION
  Report Type: Spontaneous
  Country: US (occurrence: US)
  Receive Date: 20180810
  Receipt Date: 20200205
  Transmission Date: 20200409
  Serious: Yes (Other)
  Sender: FDA-Public Use
  Company Number: US-PFIZER INC-2018317052

PATIENT
  Age: 50 Year
  Sex: Female
  Weight: 99.79 kg

DRUGS (6)
  1. SOMAVERT [Suspect]
     Active Substance: PEGVISOMANT
     Indication: ACROMEGALY
     Dosage: 10 MG, INJECTION IN STOMACH DAILY
     Dates: start: 201806, end: 201806
  2. TRESIBA [Concomitant]
     Active Substance: INSULIN DEGLUDEC
     Indication: DIABETES MELLITUS
     Dosage: 40 IU, 1X/DAY (40 UNITS ONCE PER DAY USUALLY AROUND NIGHTTIME BY INJECTION)
  3. INSULIN [Concomitant]
     Active Substance: INSULIN NOS
     Dosage: 60 UNITS BY INJECTION EVERY NIGHT, AND 10-15 UNITS AFTER MEALS
  4. SOMAVERT [Suspect]
     Active Substance: PEGVISOMANT
     Indication: PITUITARY TUMOUR
     Dosage: 40 MG, INJECTION ONCE ON THE FIRST DAY
     Dates: start: 201806, end: 201806
  5. INSULIN [Concomitant]
     Active Substance: INSULIN NOS
     Indication: HORMONE THERAPY
     Dosage: 40UNITS BY INJECTION EVERY NIGHT FOR THE LONG LASTING, AND 10 UNITS AFTER MEALS FOR THE SHORT ACTING
  6. NOVOLOG [Concomitant]
     Active Substance: INSULIN ASPART
     Indication: DIABETES MELLITUS
     Dosage: 15-20 UNITS AFTER EATING THREE TIMES PER DAY BY INJECTION

REACTIONS (9)
  - Dizziness [Recovered/Resolved]
  - Nausea [Recovered/Resolved]
  - Burning sensation [Recovered/Resolved]
  - Feeling hot [Recovered/Resolved]
  - Confusional state [Recovered/Resolved]
  - Head discomfort [Recovered/Resolved]
  - Malaise [Recovered/Resolved]
  - Fear [Recovered/Resolved]
  - Loss of consciousness [Recovered/Resolved]

NARRATIVE: CASE EVENT DATE: 201806
